FAERS Safety Report 6447392-X (Version None)
Quarter: 2009Q4

REPORT INFORMATION
  Report Type: 
  Country: None (occurrence: None)
  Receive Date: 20091116
  Receipt Date: 20091111
  Transmission Date: 20100525
  Serious: Yes (Other)
  Sender: FDA-Public Use
  Company Number: 2009SP026273

PATIENT
  Age: 42 Year
  Sex: Female

DRUGS (11)
  1. POSACONAZOLE [Suspect]
     Indication: DRUG USE FOR UNKNOWN INDICATION
     Dates: start: 20090709, end: 20090714
  2. VORICONAZOLE [Suspect]
     Indication: DRUG USE FOR UNKNOWN INDICATION
     Dates: start: 20090629, end: 20090708
  3. ALENDRONIC ACID [Concomitant]
  4. AZITHROMYCIN [Concomitant]
  5. CO-TRIMOXAZOLE [Concomitant]
  6. CYCLIZINE [Concomitant]
  7. HYDROCORTISONE [Concomitant]
  8. OMEPRAZOLE [Concomitant]
  9. SERTRALINE HCL [Concomitant]
  10. TACROLIMUS [Concomitant]
  11. WARFARIN SODIUM [Concomitant]

REACTIONS (4)
  - DRUG INEFFECTIVE [None]
  - ENCEPHALITIS [None]
  - ENCEPHALOPATHY [None]
  - LIVER DISORDER [None]
